FAERS Safety Report 5133562-X (Version None)
Quarter: 2006Q4

REPORT INFORMATION
  Report Type: 
  Country: None (occurrence: None)
  Receive Date: 20061018
  Receipt Date: 20061005
  Transmission Date: 20070319
  Serious: Yes (Other)
  Sender: FDA-Public Use
  Company Number: 2006123344

PATIENT
  Sex: Female
  Weight: 74.8435 kg

DRUGS (13)
  1. NEURONTIN [Suspect]
     Indication: BACK PAIN
     Dosage: 2700 MG (900 MG, 3 IN 1 D)OVER 1 YR AGO
  2. NEURONTIN [Suspect]
     Indication: PAIN IN EXTREMITY
     Dosage: 2700 MG (900 MG, 3 IN 1 D)OVER 1 YR AGO
  3. LYRICA [Suspect]
     Indication: NEUROPATHY
     Dosage: 150 MG (75 MG,2 IN 1 D)
     Dates: start: 20061005
  4. LYRICA [Suspect]
     Indication: UNEVALUABLE EVENT
     Dosage: 150 MG (75 MG,2 IN 1 D)
     Dates: start: 20061005
  5. ALL OTHER THERAPEUTIC PRODUCTS (ALL OTHER THERAPEUTIC PRODUCTS) [Suspect]
     Indication: NEURITIS
     Dosage: INTRATHECAL
     Route: 037
     Dates: start: 20060816, end: 20060816
  6. AMARYL [Suspect]
  7. METFORMIN HCL [Suspect]
  8. FLEXERIL [Concomitant]
  9. ZESTRIL [Concomitant]
  10. PRILOSEC [Concomitant]
  11. AMITRIPTYLINE HCL [Concomitant]
  12. LORAZEPAM [Concomitant]
  13. LIPITOR [Concomitant]

REACTIONS (9)
  - CONDITION AGGRAVATED [None]
  - DIABETES MELLITUS [None]
  - DRUG EFFECT DECREASED [None]
  - IMPAIRED HEALING [None]
  - INFLAMMATION [None]
  - INJECTION SITE DISCHARGE [None]
  - MALAISE [None]
  - MUSCLE DISORDER [None]
  - NEUROPATHY [None]
